FAERS Safety Report 25729394 (Version 1)
Quarter: 2025Q3

REPORT INFORMATION
  Report Type: Report from Study
  Country: US (occurrence: US)
  Receive Date: 20250827
  Receipt Date: 20250827
  Transmission Date: 20251021
  Serious: Yes (Other)
  Sender: ALEXION PHARMACEUTICALS
  Company Number: US-ASTRAZENECA-202508USA019123US

PATIENT
  Age: 47 Year
  Sex: Female

DRUGS (1)
  1. STRENSIQ [Suspect]
     Active Substance: ASFOTASE ALFA
     Indication: Phosphorus metabolism disorder
     Dosage: 2 MILLIGRAM/KILOGRAM, TIW
     Route: 065

REACTIONS (15)
  - Tunnel vision [Unknown]
  - Myalgia [Unknown]
  - Visual impairment [Unknown]
  - Eye pruritus [Unknown]
  - Dry eye [Unknown]
  - Ophthalmic migraine [Unknown]
  - Headache [Unknown]
  - Vision blurred [Unknown]
  - Fatigue [Unknown]
  - Pollakiuria [Unknown]
  - Asthenia [Unknown]
  - Back pain [Unknown]
  - Arthralgia [Unknown]
  - Swelling [Unknown]
  - Hypoaesthesia [Unknown]
